FAERS Safety Report 23071553 (Version 2)
Quarter: 2023Q4

REPORT INFORMATION
  Report Type: Spontaneous
  Country: US (occurrence: US)
  Receive Date: 20231017
  Receipt Date: 20231104
  Transmission Date: 20240109
  Serious: Yes (Hospitalization, Other)
  Sender: FDA-Public Use
  Company Number: US-AUROBINDO-AUR-APL-2023-063327

PATIENT
  Age: 16 Year
  Sex: Female

DRUGS (1)
  1. BUPROPION HYDROCHLORIDE [Suspect]
     Active Substance: BUPROPION HYDROCHLORIDE
     Indication: Suicide attempt
     Dosage: 9300 MILLIGRAM
     Route: 048

REACTIONS (8)
  - Intentional overdose [Unknown]
  - Ileus [Unknown]
  - Pulmonary oedema [Unknown]
  - Seizure [Unknown]
  - Agitation [Unknown]
  - Confusional state [Unknown]
  - Hypotension [Unknown]
  - Sinus tachycardia [Unknown]
